FAERS Safety Report 5004042-7 (Version None)
Quarter: 2006Q2

REPORT INFORMATION
  Report Type: 
  Country: None (occurrence: None)
  Receive Date: 20060517
  Receipt Date: 20060505
  Transmission Date: 20061013
  Serious: Yes (Other)
  Sender: FDA-Public Use
  Company Number: AU-AVENTIS-200612563EU

PATIENT
  Sex: Male

DRUGS (2)
  1. RILUTEK [Suspect]
     Route: 048
  2. SOTALOL HCL [Concomitant]

REACTIONS (3)
  - ATRIAL FLUTTER [None]
  - INFLUENZA LIKE ILLNESS [None]
  - NAUSEA [None]
